FAERS Safety Report 21008923 (Version 2)
Quarter: 2022Q3

REPORT INFORMATION
  Report Type: Spontaneous
  Country: JP (occurrence: JP)
  Receive Date: 20220627
  Receipt Date: 20220708
  Transmission Date: 20221026
  Serious: Yes (Hospitalization, Other)
  Sender: FDA-Public Use
  Company Number: JP-BRISTOL-MYERS SQUIBB COMPANY-2022-063612

PATIENT
  Age: 4 Decade
  Sex: Female

DRUGS (3)
  1. IPILIMUMAB [Suspect]
     Active Substance: IPILIMUMAB
     Indication: Renal cell carcinoma
     Route: 065
  2. OPDIVO [Suspect]
     Active Substance: NIVOLUMAB
     Indication: Renal cell carcinoma
     Route: 065
  3. UNSPECIFIED INGREDIENT [Concomitant]
     Active Substance: UNSPECIFIED INGREDIENT
     Indication: Renal cell carcinoma
     Route: 065

REACTIONS (6)
  - Malignant neoplasm progression [Unknown]
  - Drug eruption [Unknown]
  - Neutropenia [Unknown]
  - Hepatic function abnormal [Unknown]
  - Malaise [Unknown]
  - Adrenocorticotropic hormone deficiency [Recovering/Resolving]
